FAERS Safety Report 22780238 (Version 6)
Quarter: 2023Q4

REPORT INFORMATION
  Report Type: Report from Study
  Country: FR (occurrence: FR)
  Receive Date: 20230803
  Receipt Date: 20231120
  Transmission Date: 20240109
  Serious: Yes (Hospitalization, Other)
  Sender: FDA-Public Use
  Company Number: FR-CELLTRION INC.-2023FR015206

PATIENT

DRUGS (13)
  1. INFLIXIMAB-DYYB [Suspect]
     Active Substance: INFLIXIMAB-DYYB
     Indication: Ankylosing spondylitis
     Dosage: 600 MG ONCE PER 6 WEEKS
     Route: 042
     Dates: start: 20230208
  2. INFLIXIMAB-DYYB [Suspect]
     Active Substance: INFLIXIMAB-DYYB
     Dosage: 600 MG ONCE PER 6 WEEKS
     Route: 042
     Dates: start: 20230322
  3. INFLIXIMAB-DYYB [Suspect]
     Active Substance: INFLIXIMAB-DYYB
     Dosage: 600 MG ONCE PER 6 WEEKS
     Route: 042
     Dates: start: 20230503
  4. INFLIXIMAB-DYYB [Suspect]
     Active Substance: INFLIXIMAB-DYYB
     Dosage: 600 MG ONCE PER 6 WEEKS
     Route: 042
     Dates: start: 20230614
  5. INFLIXIMAB-DYYB [Suspect]
     Active Substance: INFLIXIMAB-DYYB
     Dosage: 600 MG ONCE PER 6 WEEKS
     Route: 042
     Dates: start: 20230723
  6. CELEBREX [Concomitant]
     Active Substance: CELECOXIB
     Indication: Ankylosing spondylitis
     Dosage: 200 MG, ONCE/3DAYS
     Route: 048
     Dates: start: 2019
  7. LANSOPRAZOLE [Concomitant]
     Active Substance: LANSOPRAZOLE
     Indication: Ankylosing spondylitis
     Dosage: 15 MG, ONCE / 3 DAYS15 MG, ONCE/3DAYS
     Route: 048
     Dates: start: 2019
  8. COVERAM [Concomitant]
     Active Substance: AMLODIPINE\PERINDOPRIL
     Indication: Hypertension
     Dosage: 10 MG, QD
     Route: 048
     Dates: start: 2020
  9. NERISONE [Concomitant]
     Active Substance: DIFLUCORTOLONE VALERATE
     Indication: Psoriasis
     Dosage: UNK, AS PER NEED
     Route: 061
     Dates: start: 202202
  10. ALFUZOSIN HYDROCHLORIDE [Concomitant]
     Active Substance: ALFUZOSIN HYDROCHLORIDE
     Indication: Benign prostatic hyperplasia
     Dosage: 10 MG, QD
     Route: 048
     Dates: start: 2020
  11. BETAMETHASONE [Concomitant]
     Active Substance: BETAMETHASONE\BETAMETHASONE DIPROPIONATE
     Indication: Psoriasis
     Dosage: 50 MG, AS PER NEED
     Route: 061
     Dates: start: 202303
  12. VALACYCLOVIR HYDROCHLORIDE [Concomitant]
     Active Substance: VALACYCLOVIR HYDROCHLORIDE
     Indication: Genital herpes
     Dosage: 500 MG, BID, CURE FOR A PERIOD OF 5 DAYS IN CASE OF CRISIS
     Route: 048
     Dates: start: 2022
  13. DOLIPRANE [Concomitant]
     Active Substance: ACETAMINOPHEN
     Indication: Ankylosing spondylitis
     Dosage: 1 G, AS PER NEED
     Route: 048

REACTIONS (1)
  - Vertigo positional [Recovered/Resolved]

NARRATIVE: CASE EVENT DATE: 20230519
